FAERS Safety Report 4323589-X (Version None)
Quarter: 2004Q1

REPORT INFORMATION
  Report Type: 
  Country: None (occurrence: None)
  Receive Date: 20040323
  Receipt Date: 20040209
  Transmission Date: 20041129
  Serious: No
  Sender: FDA-Public Use
  Company Number: US_0402100653

PATIENT
  Age: 51 Year
  Sex: Male
  Weight: 93 kg

DRUGS (1)
  1. CIALIS [Suspect]
     Indication: ERECTILE DYSFUNCTION
     Dosage: 10 MG
     Dates: start: 20040206

REACTIONS (2)
  - PAINFUL ERECTION [None]
  - PENIS DISORDER [None]
